FAERS Safety Report 8599483-5 (Version None)
Quarter: 2012Q3

REPORT INFORMATION
  Report Type: 
  Country: None (occurrence: None)
  Receive Date: 20120802
  Receipt Date: 20120723
  Transmission Date: 20120928
  Serious: Yes (Hospitalization)
  Sender: FDA-Public Use
  Company Number: 2012S1000834

PATIENT
  Age: 55 Year
  Sex: Male
  Weight: 99.6 kg

DRUGS (7)
  1. PLAVIX [Suspect]
     Indication: ACUTE MYOCARDIAL INFARCTION
     Dosage: 75 NG;1X;PO
     Route: 048
     Dates: start: 20120410, end: 20120609
  2. NESINA [Suspect]
     Indication: TYPE 2 DIABETES MELLITUS
     Dosage: 25 MG;1X;PO
     Route: 048
     Dates: start: 20120412, end: 20120629
  3. BISOPROLOL FUMARATE [Concomitant]
  4. LIVALO [Suspect]
     Indication: DYSLIPIDAEMIA
     Dosage: 1 MG;1X;PO
     Route: 048
     Dates: start: 20120411, end: 20120701
  5. EXFORGE [Concomitant]
  6. ASPIRIN [Concomitant]
  7. LANSOPRAZOLE [Concomitant]

REACTIONS (4)
  - BLOOD UREA INCREASED [None]
  - TREMOR [None]
  - RHABDOMYOLYSIS [None]
  - BLOOD CREATININE INCREASED [None]
